FAERS Safety Report 15394401 (Version 3)
Quarter: 2019Q1

REPORT INFORMATION
  Report Type: Report from Study
  Country: US (occurrence: US)
  Receive Date: 20180918
  Receipt Date: 20190307
  Transmission Date: 20190417
  Serious: Yes (Hospitalization)
  Sender: FDA-Public Use
  Company Number: US-TAKEDA-2018TUS027382

PATIENT
  Age: 21 Year
  Sex: Male

DRUGS (1)
  1. PONATINIB [Suspect]
     Active Substance: PONATINIB
     Indication: CHRONIC MYELOID LEUKAEMIA
     Dosage: 45 MILLIGRAM, QD
     Route: 048
     Dates: start: 20180924

REACTIONS (4)
  - Uveitis [Recovered/Resolved]
  - Vitreous floaters [Recovered/Resolved]
  - Rash papular [Unknown]
  - Hypertension [Unknown]

NARRATIVE: CASE EVENT DATE: 201811
